FAERS Safety Report 7814819-8 (Version None)
Quarter: 2011Q4

REPORT INFORMATION
  Report Type: 
  Country: None (occurrence: None)
  Receive Date: 20111014
  Receipt Date: 20111006
  Transmission Date: 20120403
  Serious: Yes (Hospitalization)
  Sender: FDA-Public Use
  Company Number: PHHY2011ES89286

PATIENT
  Age: 76 Year
  Sex: Female
  Weight: 53 kg

DRUGS (1)
  1. FLUOROURACIL [Suspect]
     Indication: RECTAL CANCER STAGE III
     Route: 042
     Dates: start: 20101207, end: 20101221

REACTIONS (3)
  - SKIN TOXICITY [None]
  - DEHYDRATION [None]
  - GASTROINTESTINAL TOXICITY [None]
